FAERS Safety Report 4396745-2 (Version None)
Quarter: 2004Q3

REPORT INFORMATION
  Report Type: 
  Country: None (occurrence: None)
  Receive Date: 20040709
  Receipt Date: 20040629
  Transmission Date: 20050211
  Serious: Yes (Hospitalization)
  Sender: FDA-Public Use
  Company Number: 2004221741GB

PATIENT
  Age: 49 Year
  Sex: Male
  Weight: 95 kg

DRUGS (4)
  1. SULFASALAZINE [Suspect]
     Indication: ARTHRITIS
     Dosage: 500 MG, QD, ORAL
     Route: 048
     Dates: end: 20040513
  2. SULFASALAZINE [Suspect]
     Indication: ARTHRITIS
     Dosage: 500 MG, QD, ORAL
     Route: 048
     Dates: start: 20040514, end: 20040525
  3. DICLOFENAC [Concomitant]
  4. ACETAMINOPHEN [Concomitant]

REACTIONS (3)
  - CHILLS [None]
  - PHOTOSENSITIVE RASH [None]
  - PYREXIA [None]
